FAERS Safety Report 25336089 (Version 1)
Quarter: 2025Q2

REPORT INFORMATION
  Report Type: Spontaneous
  Country: US (occurrence: None)
  Receive Date: 20250520
  Receipt Date: 20250520
  Transmission Date: 20250717
  Serious: Yes (Life-Threatening, Hospitalization, Disabling, Other)
  Sender: FDA-CTU
  Company Number: None

PATIENT
  Age: 80 Year
  Sex: Female
  Weight: 69.75 kg

DRUGS (16)
  1. KEYTRUDA [Suspect]
     Active Substance: PEMBROLIZUMAB
     Indication: Non-small cell lung cancer
     Route: 058
     Dates: start: 20240621, end: 20250321
  2. DECADRON [Concomitant]
     Active Substance: DEXAMETHASONE
  3. PREDNISONE [Concomitant]
     Active Substance: PREDNISONE
  4. ALBUTEROL [Concomitant]
     Active Substance: ALBUTEROL
  5. HYDROCODONE [Concomitant]
     Active Substance: HYDROCODONE
  6. lidocaine diphenhyd al mag sim mouthwash [Concomitant]
  7. GABAPENTIN [Concomitant]
     Active Substance: GABAPENTIN
  8. hydrocortisone 1% ointment [Concomitant]
  9. SIMVASTATIN [Concomitant]
     Active Substance: SIMVASTATIN
  10. LOSARTAN [Concomitant]
     Active Substance: LOSARTAN
  11. FOLIC ACID [Concomitant]
     Active Substance: FOLIC ACID
  12. lidocaine-prilocaine cream [Concomitant]
  13. ALLOPURINOL [Concomitant]
     Active Substance: ALLOPURINOL
  14. VITAMIN D3 [Concomitant]
     Active Substance: CHOLECALCIFEROL
  15. ASPIRIN [Concomitant]
     Active Substance: ASPIRIN
  16. COENZYME Q10 [Concomitant]
     Active Substance: DIETARY SUPPLEMENT\UBIDECARENONE

REACTIONS (12)
  - Oral herpes [None]
  - Immunodeficiency [None]
  - Ingrowing nail [None]
  - Skin exfoliation [None]
  - Lichenoid keratosis [None]
  - Therapy cessation [None]
  - Gait inability [None]
  - Weight decreased [None]
  - Hypophagia [None]
  - Loss of personal independence in daily activities [None]
  - Oropharyngeal discomfort [None]
  - Gastrointestinal mucosal disorder [None]

NARRATIVE: CASE EVENT DATE: 20250207
